FAERS Safety Report 20107419 (Version 1)
Quarter: 2021Q4

REPORT INFORMATION
  Report Type: Spontaneous
  Country: US (occurrence: None)
  Receive Date: 20211123
  Receipt Date: 20211123
  Transmission Date: 20220303
  Serious: Yes (Other)
  Sender: FDA-Public Use
  Company Number: None

PATIENT
  Age: 69 Year
  Sex: Female
  Weight: 76.05 kg

DRUGS (3)
  1. REGEN-COV [Suspect]
     Active Substance: CASIRIVIMAB\IMDEVIMAB
     Indication: COVID-19
     Dates: start: 20211122, end: 20211122
  2. CASIRIVIMAB [Concomitant]
     Active Substance: CASIRIVIMAB
     Dates: start: 20211122, end: 20211122
  3. IMDEVIMAB [Concomitant]
     Active Substance: IMDEVIMAB
     Dates: start: 20211122, end: 20211122

REACTIONS (3)
  - Pruritus [None]
  - Skin reaction [None]
  - Infusion related reaction [None]

NARRATIVE: CASE EVENT DATE: 20211122
